FAERS Safety Report 23098235 (Version 3)
Quarter: 2023Q4

REPORT INFORMATION
  Report Type: Spontaneous
  Country: ES (occurrence: ES)
  Receive Date: 20231023
  Receipt Date: 20231124
  Transmission Date: 20240110
  Serious: Yes (Death, Other)
  Sender: FDA-Public Use
  Company Number: ES-BEIGENE-BGN-2023-012170

PATIENT

DRUGS (1)
  1. BRUKINSA [Suspect]
     Active Substance: ZANUBRUTINIB
     Indication: Waldenstrom^s macroglobulinaemia
     Dosage: 160 MILLIGRAM, Q12H
     Dates: start: 20210109, end: 20230821

REACTIONS (4)
  - Septic shock [Fatal]
  - Pseudomonas infection [Unknown]
  - Respiratory failure [Unknown]
  - Hypotension [Unknown]

NARRATIVE: CASE EVENT DATE: 20230902
